FAERS Safety Report 5974827-9 (Version None)
Quarter: 2008Q4

REPORT INFORMATION
  Report Type: 
  Country: None (occurrence: None)
  Receive Date: 20081201
  Receipt Date: 20081126
  Transmission Date: 20090506
  Serious: Yes (Death, Hospitalization, Other)
  Sender: FDA-Public Use
  Company Number: FR-PFIZER INC-2008100575

PATIENT
  Age: 81 Year
  Sex: Female

DRUGS (7)
  1. LYRICA [Suspect]
     Indication: NEURALGIA
     Dates: start: 20081108
  2. DEXTROPROPOXYPHENE HYDROCHLORIDE [Concomitant]
     Dates: start: 20081108
  3. MICARDIS HCT [Concomitant]
  4. ROSUVASTATIN [Concomitant]
  5. ACETYLSALICYLATE LYSINE [Concomitant]
  6. BETAXOLOL [Concomitant]
  7. LEVOTHYROXINE SODIUM [Concomitant]

REACTIONS (7)
  - AGITATION [None]
  - BLOOD CREATINE PHOSPHOKINASE INCREASED [None]
  - BLOOD CREATININE INCREASED [None]
  - COMA [None]
  - CONFUSIONAL STATE [None]
  - DELIRIUM [None]
  - HYPONATRAEMIA [None]
